FAERS Safety Report 5761561-3 (Version None)
Quarter: 2008Q2

REPORT INFORMATION
  Report Type: 
  Country: None (occurrence: None)
  Receive Date: 20080606
  Receipt Date: 20080602
  Transmission Date: 20081010
  Serious: Yes (Disabling)
  Sender: FDA-Public Use
  Company Number: GB-PFIZER INC-2008044891

PATIENT
  Age: 83 Year
  Sex: Female

DRUGS (6)
  1. PREDNISOLONE [Suspect]
     Indication: ULCERATIVE KERATITIS
     Route: 061
  2. PREDNISOLONE [Suspect]
     Route: 048
  3. CEFUROXIME [Suspect]
     Indication: ULCERATIVE KERATITIS
     Route: 061
  4. OFLOXACIN [Suspect]
     Route: 061
  5. TIMOLOL MALEATE [Suspect]
     Indication: ULCERATIVE KERATITIS
     Route: 061
  6. PREDNISOLONE [Concomitant]
     Dosage: DAILY DOSE:5MG
     Route: 048

REACTIONS (1)
  - CORNEAL DEPOSITS [None]
